FAERS Safety Report 23501211 (Version 1)
Quarter: 2024Q1

REPORT INFORMATION
  Report Type: Report from Study
  Country: BR (occurrence: None)
  Receive Date: 20240208
  Receipt Date: 20240208
  Transmission Date: 20240409
  Serious: Yes (Hospitalization, Other)
  Sender: FDA-Public Use
  Company Number: 2024A028915

PATIENT
  Sex: Female

DRUGS (4)
  1. CRESTOR [Suspect]
     Active Substance: ROSUVASTATIN CALCIUM
     Indication: Carotid arteriosclerosis
     Route: 048
     Dates: start: 1990
  2. ELIQUIS [Concomitant]
     Active Substance: APIXABAN
     Indication: Product used for unknown indication
  3. ELIQUIS [Concomitant]
     Active Substance: APIXABAN
     Indication: Product used for unknown indication
     Dosage: 5.0MG UNKNOWN
  4. OLMESARTAN MEDOXOMIL [Concomitant]
     Active Substance: OLMESARTAN MEDOXOMIL
     Dosage: 40.0MG UNKNOWN

REACTIONS (10)
  - Thrombosis [Unknown]
  - Syncope [Recovered/Resolved]
  - Abdominal pain [Unknown]
  - Arrhythmia supraventricular [Unknown]
  - Hypotension [Unknown]
  - Dizziness [Unknown]
  - Ventricular extrasystoles [Unknown]
  - Fatigue [Unknown]
  - Hypertension [Unknown]
  - Product counterfeit [Unknown]

NARRATIVE: CASE EVENT DATE: 20230701
